FAERS Safety Report 21466784 (Version 3)
Quarter: 2022Q4

REPORT INFORMATION
  Report Type: Spontaneous
  Country: US (occurrence: US)
  Receive Date: 20221017
  Receipt Date: 20221226
  Transmission Date: 20230113
  Serious: Yes (Hospitalization, Other)
  Sender: FDA-Public Use
  Company Number: US-BoehringerIngelheim-2022-BI-197499

PATIENT
  Age: 78 Year
  Sex: Female
  Weight: 73.48 kg

DRUGS (2)
  1. SPIRIVA RESPIMAT [Suspect]
     Active Substance: TIOTROPIUM BROMIDE
     Indication: Asthma
     Route: 048
     Dates: start: 202205, end: 20221022
  2. SPIRIVA RESPIMAT [Suspect]
     Active Substance: TIOTROPIUM BROMIDE
     Indication: Chronic obstructive pulmonary disease

REACTIONS (4)
  - Pneumonia aspiration [Recovered/Resolved]
  - Intentional product use issue [Recovered/Resolved]
  - Atrial fibrillation [Recovered/Resolved]
  - Dose calculation error [Unknown]

NARRATIVE: CASE EVENT DATE: 20220501
